FAERS Safety Report 9404639 (Version 2)
Quarter: 2013Q3

REPORT INFORMATION
  Report Type: Spontaneous
  Country: JP (occurrence: JP)
  Receive Date: 20130717
  Receipt Date: 20130805
  Transmission Date: 20140515
  Serious: Yes (Hospitalization)
  Sender: FDA-Public Use
  Company Number: PHHY2013JP074881

PATIENT
  Age: 73 Year
  Sex: Female
  Weight: 41 kg

DRUGS (2)
  1. DICLOFENAC [Suspect]
     Dosage: 25 MG, QD
     Route: 048
     Dates: end: 20130116
  2. TEGRETOL [Suspect]
     Dosage: UNK UKN, UNK
     Route: 048
     Dates: end: 20130102

REACTIONS (9)
  - Porphyria acute [Recovered/Resolved]
  - Vomiting [Recovering/Resolving]
  - Chromaturia [Recovering/Resolving]
  - Abdominal pain [Recovering/Resolving]
  - Blood pressure increased [Recovering/Resolving]
  - Urine delta aminolevulinate [Recovering/Resolving]
  - Altered state of consciousness [Recovering/Resolving]
  - Urine porphobilinogen increased [Recovering/Resolving]
  - Gastritis atrophic [Recovered/Resolved]
